FAERS Safety Report 4763831-4 (Version None)
Quarter: 2005Q3

REPORT INFORMATION
  Report Type: 
  Country: None (occurrence: None)
  Receive Date: 20050901
  Receipt Date: 20050504
  Transmission Date: 20060218
  Serious: No
  Sender: FDA-Public Use
  Company Number: 200510827BWH

PATIENT
  Age: 74 Year
  Sex: Male

DRUGS (4)
  1. LEVITRA [Suspect]
     Dosage: 20 MG, TOTAL DAILY, ORAL;  10 MG, TOTAL DAILY, ORAL
     Route: 048
  2. LASIX [Concomitant]
  3. POTASSIUM [Concomitant]
  4. COUMADIN [Concomitant]

REACTIONS (2)
  - BLOOD GLUCOSE INCREASED [None]
  - DRUG EFFECT DECREASED [None]
